FAERS Safety Report 4898158-3 (Version None)
Quarter: 2006Q1

REPORT INFORMATION
  Report Type: 
  Country: None (occurrence: None)
  Receive Date: 20060201
  Receipt Date: 20060120
  Transmission Date: 20060701
  Serious: Yes (Hospitalization)
  Sender: FDA-Public Use
  Company Number: DE-NOVOPROD-250186

PATIENT
  Age: 75 Year
  Sex: Male
  Weight: 82 kg

DRUGS (4)
  1. ACTRAPHANE 30 NOVOLET [Suspect]
     Indication: DIABETES MELLITUS
     Dosage: 32 IE, QD
  2. LYRICA [Concomitant]
     Dosage: 2 DF, QD
     Route: 048
  3. SIMVASTATIN [Concomitant]
     Dosage: 20 MG, QD
     Route: 048
  4. ASS ^CT-ARZNEIMITTEL^ [Concomitant]
     Dosage: 1 DF, QD
     Route: 048

REACTIONS (3)
  - LOSS OF CONSCIOUSNESS [None]
  - MENTAL DISORDER [None]
  - SYNCOPE [None]
